FAERS Safety Report 26120613 (Version 2)
Quarter: 2025Q4

REPORT INFORMATION
  Report Type: Other
  Country: CN (occurrence: CN)
  Receive Date: 20251204
  Receipt Date: 20251229
  Transmission Date: 20260117
  Serious: Yes (Hospitalization, Other)
  Sender: APPCO PHARMA LLC
  Company Number: CN-Appco Pharma LLC-2189791

PATIENT
  Age: 28 Year
  Sex: Female

DRUGS (1)
  1. LABETALOL HYDROCHLORIDE [Suspect]
     Active Substance: LABETALOL HYDROCHLORIDE
     Indication: Sinus tachycardia
     Route: 061

REACTIONS (5)
  - Arrhythmia induced cardiomyopathy [Recovered/Resolved]
  - Product use in unapproved indication [Unknown]
  - Therapeutic response decreased [Unknown]
  - Maternal exposure during pregnancy [Unknown]
  - Premature delivery [Unknown]
